FAERS Safety Report 14244742 (Version 3)
Quarter: 2017Q4

REPORT INFORMATION
  Report Type: Spontaneous
  Country: SE (occurrence: SE)
  Receive Date: 20171201
  Receipt Date: 20171222
  Transmission Date: 20180321
  Serious: Yes (Hospitalization, Other)
  Sender: FDA-Public Use
  Company Number: SE-TEVA-2017-SE-826827

PATIENT
  Age: 61 Year
  Sex: Female
  Weight: 70 kg

DRUGS (1)
  1. SERTRALINE [Suspect]
     Active Substance: SERTRALINE HYDROCHLORIDE
     Indication: DEPRESSION
     Dosage: HALF A TABLET, AROUND LUNCHTIME
     Route: 048
     Dates: start: 20171114, end: 20171114

REACTIONS (11)
  - Dyspnoea [Recovered/Resolved]
  - Feeling abnormal [Unknown]
  - Skin burning sensation [Unknown]
  - Oropharyngeal pain [Unknown]
  - Tremor [Recovered/Resolved]
  - Insomnia [Not Recovered/Not Resolved]
  - Sleep disorder [Unknown]
  - Head discomfort [Not Recovered/Not Resolved]
  - Dysphagia [Unknown]
  - Pharyngeal oedema [Recovered/Resolved]
  - Energy increased [Not Recovered/Not Resolved]

NARRATIVE: CASE EVENT DATE: 201711
